FAERS Safety Report 7597226-5 (Version None)
Quarter: 2011Q3

REPORT INFORMATION
  Report Type: 
  Country: None (occurrence: None)
  Receive Date: 20110708
  Receipt Date: 20101020
  Transmission Date: 20111222
  Serious: No
  Sender: FDA-Public Use
  Company Number: US-GLAXOSMITHKLINE-A0887857A

PATIENT
  Age: 70 Year
  Sex: Female

DRUGS (9)
  1. CYMBALTA [Concomitant]
  2. BENICAR [Concomitant]
  3. FLOVENT [Suspect]
     Indication: EOSINOPHILIC OESOPHAGITIS
     Dosage: 2PUFF TWICE PER DAY
     Route: 048
     Dates: start: 20101014, end: 20101019
  4. LIPITOR [Concomitant]
  5. B VITAMIN [Concomitant]
  6. FISH OIL [Concomitant]
  7. VITAMIN D [Concomitant]
  8. MULTI-VITAMIN [Concomitant]
  9. PRILOSEC [Concomitant]

REACTIONS (7)
  - RASH PRURITIC [None]
  - DERMATITIS ACNEIFORM [None]
  - RASH [None]
  - EXCORIATION [None]
  - PRURITUS [None]
  - SKIN IRRITATION [None]
  - ERYTHEMA [None]
